APPROVED DRUG PRODUCT: PREDNISOLONE SODIUM PHOSPHATE
Active Ingredient: PREDNISOLONE SODIUM PHOSPHATE
Strength: EQ 15MG BASE/5ML
Dosage Form/Route: SOLUTION;ORAL
Application: A216715 | Product #001 | TE Code: AA
Applicant: AMNEAL PHARMACEUTICALS LLC
Approved: Oct 25, 2022 | RLD: No | RS: No | Type: RX